FAERS Safety Report 7740148-7 (Version None)
Quarter: 2011Q3

REPORT INFORMATION
  Report Type: 
  Country: None (occurrence: None)
  Receive Date: 20110909
  Receipt Date: 20110901
  Transmission Date: 20111222
  Serious: Yes (Death)
  Sender: FDA-Public Use
  Company Number: DZ-ROCHE-800672

PATIENT
  Sex: Female

DRUGS (1)
  1. AVASTIN [Suspect]
     Dosage: FREQ: PRE CURE.
     Route: 065
     Dates: start: 20101209, end: 20110524

REACTIONS (5)
  - DECREASED APPETITE [None]
  - BONE MARROW FAILURE [None]
  - GENERAL PHYSICAL HEALTH DETERIORATION [None]
  - DISEASE PROGRESSION [None]
  - BONE PAIN [None]
